FAERS Safety Report 19651806 (Version 1)
Quarter: 2021Q3

REPORT INFORMATION
  Report Type: Spontaneous
  Country: US (occurrence: US)
  Receive Date: 20210803
  Receipt Date: 20210803
  Transmission Date: 20211014
  Serious: Yes (Other)
  Sender: FDA-Public Use
  Company Number: US-PFIZER INC-2021908218

PATIENT
  Age: 20 Year
  Sex: Male

DRUGS (3)
  1. PHENOBARBITAL. [Concomitant]
     Active Substance: PHENOBARBITAL
     Indication: SEIZURE
     Dosage: 180 MG, DAILY
  2. ERYTHROMYCIN. [Suspect]
     Active Substance: ERYTHROMYCIN
     Indication: RESPIRATORY TRACT INFECTION
     Dosage: 333 MG, THRICE DAILY
     Route: 048
  3. CARBAMAZEPINE. [Interacting]
     Active Substance: CARBAMAZEPINE
     Indication: SEIZURE
     Dosage: 1200 MG, DAILY

REACTIONS (14)
  - Somnolence [Unknown]
  - Nausea [Unknown]
  - Drug level increased [Unknown]
  - Drug interaction [Unknown]
  - Ataxia [Unknown]
  - Mydriasis [Unknown]
  - Tachycardia [Unknown]
  - Lethargy [Unknown]
  - Hyperreflexia [Unknown]
  - Dysarthria [Unknown]
  - Tremor [Unknown]
  - Stupor [Unknown]
  - Vomiting [Unknown]
  - Respiratory depression [Unknown]
